FAERS Safety Report 6287256-8 (Version None)
Quarter: 2009Q3

REPORT INFORMATION
  Report Type: 
  Country: None (occurrence: None)
  Receive Date: 20090728
  Receipt Date: 20090721
  Transmission Date: 20100115
  Serious: Yes (Other)
  Sender: FDA-Public Use
  Company Number: PHHY2009GB30615

PATIENT

DRUGS (1)
  1. FEMARA [Suspect]
     Route: 048

REACTIONS (1)
  - GASTROINTESTINAL TUBE INSERTION [None]
